FAERS Safety Report 5829480-1 (Version None)
Quarter: 2008Q3

REPORT INFORMATION
  Report Type: 
  Country: None (occurrence: None)
  Receive Date: 20080729
  Receipt Date: 20080716
  Transmission Date: 20090109
  Serious: Yes (Death, Other)
  Sender: FDA-Public Use
  Company Number: 031264

PATIENT
  Sex: Female

DRUGS (2)
  1. EXTENDED PHENYTOIN SODIUM [Suspect]
     Dosage: ORAL
     Route: 048
  2. DILANTIN [Suspect]
     Dosage: ORAL
     Route: 048

REACTIONS (7)
  - DERMATITIS BULLOUS [None]
  - DRUG ERUPTION [None]
  - DRUG HYPERSENSITIVITY [None]
  - DRUG RASH WITH EOSINOPHILIA AND SYSTEMIC SYMPTOMS [None]
  - ERYTHEMA MULTIFORME [None]
  - STEVENS-JOHNSON SYNDROME [None]
  - TOXIC EPIDERMAL NECROLYSIS [None]
